FAERS Safety Report 7209413-6 (Version None)
Quarter: 2011Q1

REPORT INFORMATION
  Report Type: 
  Country: None (occurrence: None)
  Receive Date: 20110104
  Receipt Date: 20101228
  Transmission Date: 20110831
  Serious: Yes (Death, Hospitalization)
  Sender: FDA-Public Use
  Company Number: US-AMGEN-KDL442745

PATIENT

DRUGS (9)
  1. PROCRIT [Suspect]
     Indication: RENAL FAILURE CHRONIC
     Dosage: 40000 IU, QWK
     Route: 058
     Dates: start: 20030301
  2. WARFARIN SODIUM [Concomitant]
     Dosage: 5 MG, QD
     Route: 048
  3. POLYSACCHARIDE-IRON COMPLEX [Concomitant]
     Dosage: 150 MG, QD
     Route: 048
  4. AMIODARONE [Concomitant]
     Dosage: 150 MG, QD
     Route: 048
  5. ATORVASTATIN CALCIUM [Concomitant]
     Dosage: 40 MG, QD
     Route: 048
  6. LEVOTHYROXINE SODIUM [Concomitant]
     Dosage: .2 MG, QD
     Route: 048
  7. ASPIRIN [Concomitant]
     Dosage: 81 MG, QD
     Route: 048
  8. ALLOPURINOL [Concomitant]
     Dosage: 150 MG, QD
     Route: 048
  9. FUROSEMIDE [Concomitant]
     Dosage: 40 MG, QD
     Route: 048

REACTIONS (3)
  - WEIGHT DECREASED [None]
  - GASTRITIS [None]
  - AZOTAEMIA [None]
